FAERS Safety Report 8823445 (Version 2)
Quarter: 2012Q4

REPORT INFORMATION
  Report Type: 
  Country: US (occurrence: US)
  Receive Date: 20121003
  Receipt Date: 20121025
  Transmission Date: 20130627
  Serious: Yes (Hospitalization, Other)
  Sender: FDA-Public Use
  Company Number: US-TEVA-361577USA

PATIENT
  Age: 63 None
  Sex: Female

DRUGS (1)
  1. COPAXONE [Suspect]
     Indication: MULTIPLE SCLEROSIS
     Dates: start: 19980223

REACTIONS (4)
  - Fall [Recovered/Resolved]
  - Lower limb fracture [Unknown]
  - Decubitus ulcer [Not Recovered/Not Resolved]
  - Osteomyelitis [Unknown]
